FAERS Safety Report 4467313-9 (Version None)
Quarter: 2004Q4

REPORT INFORMATION
  Report Type: 
  Country: None (occurrence: None)
  Receive Date: 20041006
  Receipt Date: 20041005
  Transmission Date: 20050328
  Serious: Yes (Death)
  Sender: FDA-Public Use
  Company Number: FR-GLAXOSMITHKLINE-B0347195A

PATIENT
  Age: 54 Year
  Sex: Male

DRUGS (5)
  1. ZYBAN [Suspect]
     Indication: SMOKING CESSATION THERAPY
     Dosage: 150MG TWICE PER DAY
     Route: 048
     Dates: start: 20040820, end: 20040922
  2. NOVONORM [Concomitant]
     Indication: DIABETES MELLITUS NON-INSULIN-DEPENDENT
     Dates: start: 20040916
  3. ACTOS [Concomitant]
     Indication: DIABETES MELLITUS NON-INSULIN-DEPENDENT
     Dates: start: 20040916
  4. MEDIATOR [Concomitant]
     Indication: DIABETES MELLITUS NON-INSULIN-DEPENDENT
  5. ASPEGIC 325 [Concomitant]
     Indication: ARTERITIS

REACTIONS (3)
  - CEREBRAL ISCHAEMIA [None]
  - COMPLETED SUICIDE [None]
  - INJURY ASPHYXIATION [None]
